FAERS Safety Report 23768236 (Version 1)
Quarter: 2024Q2

REPORT INFORMATION
  Report Type: Spontaneous
  Country: US (occurrence: None)
  Receive Date: 20240419
  Receipt Date: 20240419
  Transmission Date: 20240716
  Serious: Yes (Hospitalization)
  Sender: FDA-Public Use
  Company Number: None

PATIENT
  Age: 76 Year
  Sex: Female

DRUGS (7)
  1. HUMIRA [Suspect]
     Active Substance: ADALIMUMAB
     Indication: Osteoarthritis
     Dosage: 402 MG EVERY 2 WEEKS SUBCUTANEOUS?
     Route: 058
     Dates: start: 20240214
  2. HUMIRA [Suspect]
     Active Substance: ADALIMUMAB
     Indication: Senile osteoporosis
  3. HUMIRA [Suspect]
     Active Substance: ADALIMUMAB
     Indication: Rheumatoid arthritis
  4. HUMIRA [Suspect]
     Active Substance: ADALIMUMAB
     Indication: Rheumatoid factor positive
  5. CHLORTHALIDONE [Suspect]
     Active Substance: CHLORTHALIDONE
     Dates: start: 20240214
  6. AMLODIPINE [Suspect]
     Active Substance: AMLODIPINE BESYLATE
  7. KLOR-CON [Suspect]
     Active Substance: POTASSIUM CHLORIDE

REACTIONS (1)
  - Supraventricular tachycardia [None]

NARRATIVE: CASE EVENT DATE: 20240415
